FAERS Safety Report 10350959 (Version 1)
Quarter: 2014Q3

REPORT INFORMATION
  Report Type: Spontaneous
  Country: US (occurrence: US)
  Receive Date: 20140730
  Receipt Date: 20140730
  Transmission Date: 20150326
  Serious: No
  Sender: FDA-Public Use
  Company Number: US-ASTRAZENECA-2014SE52704

PATIENT
  Age: 56 Year
  Sex: Male
  Weight: 88.5 kg

DRUGS (4)
  1. UNKNOWN GENERIC [Concomitant]
     Indication: BLOOD PRESSURE ABNORMAL
  2. LEVOTHROXINE [Concomitant]
     Indication: THYROID DISORDER
     Dosage: 200 MCG
  3. LOSARTAN [Concomitant]
     Active Substance: LOSARTAN
     Indication: BLOOD PRESSURE ABNORMAL
     Dosage: 100 MG
  4. CRESTOR [Suspect]
     Active Substance: ROSUVASTATIN CALCIUM
     Indication: BLOOD CHOLESTEROL INCREASED
     Route: 048
     Dates: start: 201405, end: 20140714

REACTIONS (4)
  - Feeling abnormal [Recovering/Resolving]
  - Confusional state [Recovering/Resolving]
  - Concussion [Recovering/Resolving]
  - Amnesia [Recovering/Resolving]

NARRATIVE: CASE EVENT DATE: 201405
